FAERS Safety Report 9227479 (Version 3)
Quarter: 2014Q2

REPORT INFORMATION
  Report Type: Spontaneous
  Country: US (occurrence: US)
  Receive Date: 20130412
  Receipt Date: 20140417
  Transmission Date: 20141212
  Serious: Yes (Death, Other)
  Sender: FDA-Public Use
  Company Number: US-ASTELLAS-2013US003846

PATIENT
  Age: 73 Year
  Sex: Male

DRUGS (5)
  1. XTANDI [Suspect]
     Indication: PROSTATE CANCER
     Route: 048
     Dates: start: 20131118, end: 20140317
  2. XTANDI [Suspect]
     Route: 048
     Dates: start: 20130130
  3. ASA [Concomitant]
     Indication: PAIN
     Route: 048
  4. PREDNISONE [Concomitant]
     Indication: PROSTATE CANCER
     Route: 048
  5. ALEVE [Concomitant]
     Indication: PAIN
     Route: 065

REACTIONS (4)
  - Death [Fatal]
  - Tremor [Unknown]
  - Myalgia [Unknown]
  - Fatigue [Unknown]
